FAERS Safety Report 24133451 (Version 1)
Quarter: 2024Q3

REPORT INFORMATION
  Report Type: Spontaneous
  Country: US (occurrence: None)
  Receive Date: 20240724
  Receipt Date: 20240724
  Transmission Date: 20241016
  Serious: No
  Sender: Public
  Company Number: None

PATIENT
  Age: 74 Year
  Sex: Female
  Weight: 68.85 kg

DRUGS (5)
  1. JARDIANCE [Suspect]
     Active Substance: EMPAGLIFLOZIN
     Indication: Type 2 diabetes mellitus
     Route: 048
     Dates: start: 20240716, end: 20240723
  2. LUTEIN + ZEAXANTHIN [Concomitant]
  3. MULTIVITAMIN [Concomitant]
  4. VITAMIN E [Concomitant]
     Active Substance: .ALPHA.-TOCOPHEROL
  5. VITAMIN D3 [Concomitant]
     Active Substance: CHOLECALCIFEROL

REACTIONS (8)
  - Fungal infection [None]
  - Abdominal pain [None]
  - Urinary tract infection [None]
  - Malaise [None]
  - Blood pressure increased [None]
  - Oral candidiasis [None]
  - Oropharyngeal pain [None]
  - Abdominal tenderness [None]

NARRATIVE: CASE EVENT DATE: 20240720
